FAERS Safety Report 12799644 (Version 2)
Quarter: 2017Q1

REPORT INFORMATION
  Report Type: Spontaneous
  Country: US (occurrence: US)
  Receive Date: 20160930
  Receipt Date: 20170214
  Transmission Date: 20170428
  Serious: Yes (Other)
  Sender: FDA-Public Use
  Company Number: US-TEVA-679788USA

PATIENT
  Sex: Female

DRUGS (2)
  1. CHLORDIAZEPOXIDE. [Suspect]
     Active Substance: CHLORDIAZEPOXIDE
     Indication: ANXIETY
     Dosage: 25 MILLIGRAM DAILY;
     Route: 048
  2. CARBAMAZEPINE. [Concomitant]
     Active Substance: CARBAMAZEPINE
     Indication: TRIGEMINAL NEURALGIA

REACTIONS (10)
  - Sensory disturbance [Unknown]
  - Hyperhidrosis [Unknown]
  - Sleep disorder [Unknown]
  - Anxiety [Recovered/Resolved]
  - Feeling jittery [Unknown]
  - Pain [Unknown]
  - Tension [Unknown]
  - Drug ineffective [Unknown]
  - Hot flush [Unknown]
  - Drug withdrawal syndrome [Recovered/Resolved]

NARRATIVE: CASE EVENT DATE: 2016
